FAERS Safety Report 5914489-X (Version None)
Quarter: 2008Q4

REPORT INFORMATION
  Report Type: 
  Country: None (occurrence: None)
  Receive Date: 20081008
  Receipt Date: 20080927
  Transmission Date: 20090506
  Serious: Yes (Life-Threatening, Other)
  Sender: FDA-Public Use
  Company Number: CIR-DE-031-08

PATIENT
  Age: 55 Year
  Sex: Female

DRUGS (8)
  1. CIRCADIN (MELATONIN) [Suspect]
     Dosage: MAX. 21 TABLETS, ORAL
     Route: 048
     Dates: start: 20080927, end: 20080927
  2. AMITRIPTYLINE HYDROCHLORIDE [Suspect]
     Dosage: MAX. 1000 MG (100 MG), ORAL
     Route: 048
     Dates: start: 20080927, end: 20080927
  3. METOPROLOL TARTRATE [Suspect]
     Dosage: MAX. 3000 MG (100 MG), ORAL
     Route: 048
     Dates: start: 20080927, end: 20080927
  4. RAMIPRIL [Suspect]
     Dosage: MAX. 680 MG (10 MG), ORAL
     Route: 048
     Dates: start: 20080927, end: 20080927
  5. SEROQUEL [Suspect]
     Dosage: MAX. 1000 MG (100 MG), ORAL
     Route: 048
     Dates: start: 20080927, end: 20080927
  6. SIMVASTATIN [Suspect]
     Dosage: MAX. 200 MG (20 MG), ORAL
     Route: 048
     Dates: start: 20080927, end: 20080927
  7. LORAZEPAM [Suspect]
     Dosage: (100 MG), ORAL
     Route: 048
     Dates: start: 20080927, end: 20080927
  8. VENLAFAXINE HCL [Suspect]
     Dosage: (100 MG), ORAL
     Route: 048
     Dates: start: 20080927, end: 20080927

REACTIONS (5)
  - ACIDOSIS [None]
  - HYPOTENSION [None]
  - MULTIPLE DRUG OVERDOSE INTENTIONAL [None]
  - SOPOR [None]
  - SUICIDE ATTEMPT [None]
